FAERS Safety Report 5964975-1 (Version None)
Quarter: 2008Q4

REPORT INFORMATION
  Report Type: 
  Country: None (occurrence: None)
  Receive Date: 20081121
  Receipt Date: 20081112
  Transmission Date: 20090506
  Serious: No
  Sender: FDA-Public Use
  Company Number: 08H-163-0315183-00

PATIENT
  Age: 80 Year
  Sex: Female
  Weight: 61 kg

DRUGS (11)
  1. HEPARIN SODIUM INJECTION [Suspect]
     Indication: ANTICOAGULANT THERAPY
     Dosage: INTRAVENOUS
     Route: 042
  2. HEPARIN SODIUM INJECTION [Suspect]
     Indication: ANTICOAGULANT THERAPY
     Dosage: 1,000 U/H, CONTINOUS, INFUSION
  3. HEPARIN SODIUM [Suspect]
     Indication: THROMBOSIS PROPHYLAXIS
     Dosage: 5000 IU, 2 IN 1 D, SUBCUTANEOUS
     Route: 059
  4. HEPARIN SODIUM INJECTION [Suspect]
     Dosage: 5000 UNIT, ONCE, BOLUS
     Route: 040
  5. FLUIDS (PARENTERAL) [Concomitant]
  6. MORPHINE [Concomitant]
  7. BUPIVACAINE [Concomitant]
  8. RINGER'S [Concomitant]
  9. DIURETICS (DIURETICS) [Concomitant]
  10. INHALERS [Concomitant]
  11. OXYGEN (OXYGEN) [Concomitant]

REACTIONS (5)
  - BLOOD PRESSURE SYSTOLIC INCREASED [None]
  - CARDIAC FAILURE CONGESTIVE [None]
  - ELECTROCARDIOGRAM T WAVE INVERSION [None]
  - EXTRADURAL HAEMATOMA [None]
  - SPINAL CORD COMPRESSION [None]
